FAERS Safety Report 8782944 (Version 1)
Quarter: 2012Q4

REPORT INFORMATION
  Report Type: Report from Study
  Country: US (occurrence: US)
  Receive Date: 20120913
  Receipt Date: 20120913
  Transmission Date: 20130627
  Serious: No
  Sender: FDA-Public Use
  Company Number: US-VERTEX PHARMACEUTICAL INC.-AE-2012-009757

PATIENT
  Age: 57 Year
  Sex: Male
  Weight: 68.18 kg

DRUGS (6)
  1. INCIVEK [Suspect]
     Indication: HEPATITIS C
     Route: 048
  2. PEGASYS INJ PROCLICK [Concomitant]
     Indication: HEPATITIS C
  3. RIBAPAK [Concomitant]
     Indication: HEPATITIS C
  4. OLUX OLUX-E MIS COMP PK [Concomitant]
  5. ADVIL [Concomitant]
  6. NYQUIL LIQ ORIGINAL [Concomitant]

REACTIONS (2)
  - Insomnia [Unknown]
  - Platelet count decreased [Unknown]
